FAERS Safety Report 6686923-1 (Version None)
Quarter: 2010Q2

REPORT INFORMATION
  Report Type: 
  Country: None (occurrence: None)
  Receive Date: 20100419
  Receipt Date: 20100406
  Transmission Date: 20101027
  Serious: Yes (Hospitalization)
  Sender: FDA-Public Use
  Company Number: PHHO2010US05757

PATIENT
  Sex: Female
  Weight: 82.948 kg

DRUGS (3)
  1. AFINITOR [Suspect]
     Indication: BREAST CANCER
     Dosage: 30 MG PO WEEKLY FOR 9 WEEKS
     Route: 048
  2. PACLITAXEL COMP-PAC+ [Suspect]
     Indication: BREAST CANCER
     Dosage: 150MG
     Dates: start: 20100314
  3. CISPLATIN COMP-CIS+ [Suspect]
     Indication: BREAST CANCER

REACTIONS (10)
  - ASTHENIA [None]
  - DIARRHOEA [None]
  - DIASTOLIC DYSFUNCTION [None]
  - ELECTROCARDIOGRAM Q WAVE ABNORMAL [None]
  - ELECTROCARDIOGRAM T WAVE ABNORMAL [None]
  - FATIGUE [None]
  - HYPOPHAGIA [None]
  - HYPOVOLAEMIA [None]
  - NAUSEA [None]
  - SYNCOPE [None]
